FAERS Safety Report 5757503-7 (Version None)
Quarter: 2008Q2

REPORT INFORMATION
  Report Type: 
  Country: None (occurrence: None)
  Receive Date: 20080529
  Receipt Date: 20080521
  Transmission Date: 20081010
  Serious: Yes (Other)
  Sender: FDA-Public Use
  Company Number: 2008013430

PATIENT
  Age: 61 Year
  Sex: Female
  Weight: 82 kg

DRUGS (4)
  1. CETIRIZINE HCL [Suspect]
     Dosage: 10 MG DAILY, ORAL
     Route: 048
  2. PROPULSID [Concomitant]
  3. PLENDIL [Concomitant]
  4. OMEPRAZOLE [Concomitant]

REACTIONS (3)
  - CHILLS [None]
  - FLUSHING [None]
  - MALAISE [None]
